FAERS Safety Report 9626474 (Version 2)
Quarter: 2013Q4

REPORT INFORMATION
  Report Type: Spontaneous
  Country: JP (occurrence: JP)
  Receive Date: 20131016
  Receipt Date: 20131104
  Transmission Date: 20140711
  Serious: Yes (Other)
  Sender: FDA-Public Use
  Company Number: JP-PFIZER INC-2013290936

PATIENT
  Age: 86 Year
  Sex: Female

DRUGS (1)
  1. CARDENALIN [Suspect]
     Dosage: UNK
     Route: 048
     Dates: start: 20131008

REACTIONS (3)
  - Intraocular pressure decreased [Unknown]
  - Visual impairment [Unknown]
  - Blood pressure decreased [Unknown]
